FAERS Safety Report 20615927 (Version 1)
Quarter: 2022Q1

REPORT INFORMATION
  Report Type: Report from Study
  Country: US (occurrence: US)
  Receive Date: 20220321
  Receipt Date: 20220321
  Transmission Date: 20220423
  Serious: Yes (Hospitalization, Other)
  Sender: FDA-Public Use
  Company Number: US-SANOFI-00491531

PATIENT
  Age: 74 Year
  Sex: Female

DRUGS (5)
  1. AUBAGIO [Suspect]
     Active Substance: TERIFLUNOMIDE
     Indication: Multiple sclerosis
     Dosage: 14 MG, QD
     Route: 048
     Dates: start: 20200924
  2. SOTALOL [Concomitant]
     Active Substance: SOTALOL
     Dosage: UNK
     Dates: start: 2021
  3. SPIRONOLACTONE [Concomitant]
     Active Substance: SPIRONOLACTONE
     Dosage: UNK
     Dates: start: 2021
  4. HYDRALAZINE [Concomitant]
     Active Substance: HYDRALAZINE HYDROCHLORIDE
     Dosage: UNK
     Dates: end: 2021
  5. LASIX [Concomitant]
     Active Substance: FUROSEMIDE
     Dosage: ONCE A DAY

REACTIONS (11)
  - COVID-19 [Unknown]
  - Oxygen saturation decreased [Unknown]
  - Cardiac failure congestive [Unknown]
  - Peripheral artery thrombosis [Unknown]
  - Atrial fibrillation [Unknown]
  - Vascular occlusion [Unknown]
  - Skin ulcer [Not Recovered/Not Resolved]
  - Upper-airway cough syndrome [Unknown]
  - Nasopharyngitis [Unknown]
  - Blood pressure abnormal [Unknown]
  - Alopecia [Recovering/Resolving]

NARRATIVE: CASE EVENT DATE: 20201201
